FAERS Safety Report 18151765 (Version 2)
Quarter: 2020Q3

REPORT INFORMATION
  Report Type: Spontaneous
  Country: IT (occurrence: IT)
  Receive Date: 20200814
  Receipt Date: 20200820
  Transmission Date: 20201103
  Serious: Yes (Death, Life-Threatening, Hospitalization, Other)
  Sender: FDA-Public Use
  Company Number: IT-STRIDES ARCOLAB LIMITED-2020SP009232

PATIENT
  Age: 48 Year
  Sex: Female

DRUGS (12)
  1. CLOTIAPINE [Suspect]
     Active Substance: CLOTHIAPINE
     Indication: OBSESSIVE-COMPULSIVE DISORDER
  2. GABAPENTIN. [Suspect]
     Active Substance: GABAPENTIN
     Indication: PERSONALITY DISORDER
     Dosage: 300 MILLIGRAM, EVERY 12 HRS, (TABLET)
     Route: 065
  3. CLOTIAPINE [Suspect]
     Active Substance: CLOTHIAPINE
     Indication: PERSONALITY DISORDER
     Dosage: 20 DROP
     Route: 065
  4. PROPRANOLOL HYDROCHLORIDE. [Concomitant]
     Active Substance: PROPRANOLOL HYDROCHLORIDE
     Indication: PERSONALITY DISORDER
  5. CLONAZEPAM. [Suspect]
     Active Substance: CLONAZEPAM
     Indication: OBSESSIVE-COMPULSIVE DISORDER
  6. FLUVOXAMINE [Suspect]
     Active Substance: FLUVOXAMINE
     Indication: OBSESSIVE-COMPULSIVE DISORDER
  7. PROPRANOLOL HYDROCHLORIDE. [Concomitant]
     Active Substance: PROPRANOLOL HYDROCHLORIDE
     Indication: OBSESSIVE-COMPULSIVE DISORDER
     Dosage: 40 MILLIGRAM, UNK
     Route: 065
  8. HALOPERIDOL. [Concomitant]
     Active Substance: HALOPERIDOL
     Indication: OBSESSIVE-COMPULSIVE DISORDER
     Dosage: 10 DROP, EVERY 12 HRS
     Route: 065
  9. HALOPERIDOL. [Concomitant]
     Active Substance: HALOPERIDOL
     Indication: PERSONALITY DISORDER
  10. GABAPENTIN. [Suspect]
     Active Substance: GABAPENTIN
     Indication: OBSESSIVE-COMPULSIVE DISORDER
  11. CLONAZEPAM. [Suspect]
     Active Substance: CLONAZEPAM
     Indication: PERSONALITY DISORDER
     Dosage: 20 DROP, EVERY 8 HRS
     Route: 065
  12. FLUVOXAMINE [Suspect]
     Active Substance: FLUVOXAMINE
     Indication: PERSONALITY DISORDER
     Dosage: 150 MILLIGRAM, UNK
     Route: 065

REACTIONS (10)
  - Lung hyperinflation [Fatal]
  - Unresponsive to stimuli [Unknown]
  - Off label use [Unknown]
  - Vomiting [Unknown]
  - Asphyxia [Fatal]
  - Oedema [Fatal]
  - Toxicity to various agents [Fatal]
  - Pulmonary alveolar haemorrhage [Fatal]
  - Drug level increased [Fatal]
  - Visceral congestion [Unknown]
